FAERS Safety Report 9590043 (Version 1)
Quarter: 2013Q4

REPORT INFORMATION
  Report Type: Spontaneous
  Country: US (occurrence: US)
  Receive Date: 20131003
  Receipt Date: 20131003
  Transmission Date: 20140711
  Serious: No
  Sender: FDA-Public Use
  Company Number: US-AMGEN-USASP2012074449

PATIENT
  Sex: Male

DRUGS (5)
  1. ENBREL [Suspect]
     Indication: PSORIASIS
     Dosage: 50 MG, 2 TIMES/WK
  2. DOVONEX [Concomitant]
     Dosage: 0.005 %, UNK
  3. SIMVASTATIN [Concomitant]
     Dosage: 5 MG, UNK
  4. VITAMIN D                          /00107901/ [Concomitant]
     Dosage: 400 UNIT, UNK
  5. HALOBETASOL PROP [Concomitant]
     Dosage: 0.05 %, UNK

REACTIONS (1)
  - Therapeutic response decreased [Unknown]
